FAERS Safety Report 6553481-1 (Version None)
Quarter: 2010Q1

REPORT INFORMATION
  Report Type: 
  Country: None (occurrence: None)
  Receive Date: 20100127
  Receipt Date: 20100119
  Transmission Date: 20100710
  Serious: Yes (Other)
  Sender: FDA-Public Use
  Company Number: US-TEVA-215349USA

PATIENT
  Sex: Female

DRUGS (5)
  1. CLARAVIS [Suspect]
     Route: 048
  2. PAROXETINE HYDROCHLORIDE [Concomitant]
  3. ALPRAZOLAM [Concomitant]
  4. FISH OIL [Concomitant]
  5. NICOTINE [Concomitant]

REACTIONS (3)
  - DEHYDRATION [None]
  - MUSCLE SPASMS [None]
  - SUICIDAL IDEATION [None]
